FAERS Safety Report 15103334 (Version 2)
Quarter: 2018Q3

REPORT INFORMATION
  Report Type: Spontaneous
  Country: GB (occurrence: GB)
  Receive Date: 20180703
  Receipt Date: 20180820
  Transmission Date: 20181010
  Serious: Yes (Other)
  Sender: FDA-Public Use
  Company Number: GB-ALIMERA SCIENCES LIMITED-GB-IL-2018-004061

PATIENT

DRUGS (1)
  1. ILUVIEN [Suspect]
     Active Substance: FLUOCINOLONE ACETONIDE
     Indication: DIABETIC RETINAL OEDEMA
     Dosage: 0.25 ?G, QD ? LEFT EYE
     Route: 031
     Dates: start: 20170125, end: 20180514

REACTIONS (5)
  - Retinal laser coagulation [Not Recovered/Not Resolved]
  - Medical device removal [Recovered/Resolved]
  - Intraocular pressure increased [Not Recovered/Not Resolved]
  - Retinal operation [Recovered/Resolved]
  - Vitrectomy [Recovered/Resolved]

NARRATIVE: CASE EVENT DATE: 2017
